FAERS Safety Report 7887977-7 (Version None)
Quarter: 2011Q4

REPORT INFORMATION
  Report Type: 
  Country: None (occurrence: None)
  Receive Date: 20111103
  Receipt Date: 20111027
  Transmission Date: 20120403
  Serious: Yes (Other)
  Sender: FDA-Public Use
  Company Number: JP-ASTELLAS-2011JP007765

PATIENT
  Age: 9 Month
  Sex: Male

DRUGS (4)
  1. STEROID [Concomitant]
     Indication: VENOOCCLUSIVE DISEASE
     Route: 065
  2. PROGRAF [Suspect]
     Indication: PROPHYLAXIS AGAINST GRAFT VERSUS HOST DISEASE
     Route: 065
  3. FRESH FROZEN PLASMA [Concomitant]
     Indication: VENOOCCLUSIVE DISEASE
     Dosage: UNK
     Route: 041
  4. METHOTREXATE [Concomitant]
     Indication: PROPHYLAXIS AGAINST GRAFT VERSUS HOST DISEASE
     Route: 065

REACTIONS (3)
  - DRUG INEFFECTIVE [None]
  - ACUTE GRAFT VERSUS HOST DISEASE [None]
  - FOOD ALLERGY [None]
